FAERS Safety Report 7861496-6 (Version None)
Quarter: 2011Q4

REPORT INFORMATION
  Report Type: 
  Country: None (occurrence: None)
  Receive Date: 20111027
  Receipt Date: 20111024
  Transmission Date: 20120403
  Serious: Yes (Hospitalization)
  Sender: FDA-Public Use
  Company Number: JP-PFIZER INC-2011243092

PATIENT
  Age: 73 Year
  Sex: Female

DRUGS (17)
  1. LOXONIN [Concomitant]
     Indication: PAIN
     Dosage: 120MG/DAY
     Route: 048
     Dates: start: 20090701, end: 20110907
  2. CILOSTAZOL [Concomitant]
     Indication: SCLERODERMA
     Dosage: 200MG/DAY
     Route: 048
     Dates: start: 20080901
  3. PREDNISOLONE [Concomitant]
     Indication: VASCULITIS
     Dosage: 20 MG, 1X/DAY
     Route: 048
  4. CEREKINON [Concomitant]
     Indication: GASTROINTESTINAL DISORDER
     Dosage: 300MG/DAY
     Route: 048
  5. LENDORMIN [Concomitant]
     Indication: SLEEP DISORDER
     Dosage: 0.25 MG, 1X/DAY
     Route: 048
     Dates: start: 20090701
  6. CARVEDILOL [Concomitant]
     Indication: HYPERTENSION
     Dosage: 5 MG, 1X/DAY
     Route: 048
  7. TRAMADOL HYDROCHLORIDE AND ACETAMINOPHEN [Concomitant]
     Indication: PAIN
     Dosage: 5 DF/DAY
     Dates: start: 20110908
  8. BACTRIM [Concomitant]
     Indication: ANTIFUNGAL PROPHYLAXIS
     Dosage: 0.5 G, 1X/DAY
     Route: 048
     Dates: start: 20091101, end: 20110906
  9. METHYCOBAL [Concomitant]
     Indication: PAIN
     Dosage: UNK
     Route: 048
     Dates: start: 20110904, end: 20110922
  10. CALCITRIOL [Concomitant]
     Indication: OSTEOPOROSIS PROPHYLAXIS
     Dosage: 0.5 MG, 1X/DAY
     Route: 048
     Dates: end: 20110923
  11. LANSOPRAZOLE [Concomitant]
     Indication: GASTROOESOPHAGEAL REFLUX DISEASE
     Dosage: 15 MG, 1X/DAY
     Route: 048
  12. FERROUS CITRATE [Concomitant]
     Indication: PROPHYLAXIS
     Dosage: 50 MG, 1X/DAY
     Route: 048
     Dates: start: 20100701, end: 20110923
  13. JUVELA NICOTINATE [Concomitant]
     Indication: SCLERODERMA
     Dosage: 600MG/DAY
     Route: 048
  14. DOMPERIDONE [Concomitant]
     Indication: PROPHYLAXIS OF NAUSEA AND VOMITING
     Dosage: 30MG/DAY
     Route: 048
     Dates: start: 20110908, end: 20110922
  15. VALTREX [Concomitant]
     Indication: INFECTION PROPHYLAXIS
     Dosage: 250 MG, 1X/DAY
     Route: 048
     Dates: start: 20080101
  16. GRIMAC [Concomitant]
     Indication: GASTRIC MUCOSAL LESION
     Dosage: 1.5MG/DAY
     Route: 048
     Dates: start: 20110601
  17. PREGABALIN [Suspect]
     Indication: COMPLEX REGIONAL PAIN SYNDROME
     Dosage: 25 MG, 2X/DAY
     Dates: start: 20110904, end: 20111005

REACTIONS (3)
  - SOMNOLENCE [None]
  - DECREASED APPETITE [None]
  - HYPONATRAEMIA [None]
